FAERS Safety Report 17907939 (Version 2)
Quarter: 2020Q3

REPORT INFORMATION
  Report Type: Spontaneous
  Country: BE (occurrence: BE)
  Receive Date: 20200617
  Receipt Date: 20200705
  Transmission Date: 20201103
  Serious: Yes (Hospitalization, Disabling)
  Sender: FDA-Public Use
  Company Number: BE-ROCHE-2621751

PATIENT
  Age: 83 Year
  Sex: Female

DRUGS (5)
  1. CRESTOR [Concomitant]
     Active Substance: ROSUVASTATIN CALCIUM
  2. PROLOPA [Concomitant]
     Active Substance: BENSERAZIDE\LEVODOPA
  3. XELODA [Suspect]
     Active Substance: CAPECITABINE
     Indication: COLON CANCER
     Dosage: HAS TO DO 3 MORE CURES
     Route: 048
     Dates: start: 20200225
  4. D?CURE [Concomitant]
     Active Substance: CHOLECALCIFEROL
  5. ASAFLOW [Concomitant]
     Active Substance: ASPIRIN

REACTIONS (3)
  - Haemorrhoids [Recovering/Resolving]
  - Constipation [Recovering/Resolving]
  - Intestinal obstruction [Recovering/Resolving]

NARRATIVE: CASE EVENT DATE: 20200408
